FAERS Safety Report 6328453-2 (Version None)
Quarter: 2009Q3

REPORT INFORMATION
  Report Type: 
  Country: None (occurrence: None)
  Receive Date: 20090825
  Receipt Date: 20090618
  Transmission Date: 20100115
  Serious: No
  Sender: FDA-Public Use
  Company Number: US-ABBOTT-09P-163-0581027-00

PATIENT
  Sex: Female
  Weight: 94.432 kg

DRUGS (10)
  1. SYNTHROID [Suspect]
     Indication: HYPOTHYROIDISM
     Route: 048
     Dates: start: 20040101, end: 20040101
  2. SYNTHROID [Suspect]
     Route: 048
     Dates: start: 20050101, end: 20050101
  3. SYNTHROID [Suspect]
     Route: 048
     Dates: start: 20060101, end: 20060101
  4. SYNTHROID [Suspect]
     Dates: start: 20090301, end: 20090301
  5. SYNTHROID [Suspect]
     Route: 048
     Dates: start: 20090601, end: 20090601
  6. SYNTHROID [Suspect]
     Indication: HYPOTHYROIDISM
     Route: 048
     Dates: start: 20060101
  7. DIOVAN [Concomitant]
     Indication: HYPERTENSION
     Route: 048
  8. LITHOBID [Concomitant]
     Indication: BIPOLAR DISORDER
     Route: 048
  9. LYRICA [Concomitant]
     Indication: NEUROPATHY PERIPHERAL
     Route: 048
  10. LOVASA [Concomitant]
     Indication: BLOOD CHOLESTEROL INCREASED
     Route: 048

REACTIONS (6)
  - BLOOD PRESSURE INCREASED [None]
  - BLOOD THYROID STIMULATING HORMONE ABNORMAL [None]
  - DIARRHOEA [None]
  - FEELING ABNORMAL [None]
  - NAUSEA [None]
  - OSTEOMYELITIS [None]
